FAERS Safety Report 9397694 (Version 2)
Quarter: 2013Q3

REPORT INFORMATION
  Report Type: Spontaneous
  Country: US (occurrence: US)
  Receive Date: 20130712
  Receipt Date: 20130715
  Transmission Date: 20140515
  Serious: Yes (Hospitalization)
  Sender: FDA-Public Use
  Company Number: US-ALLERGAN-1310023US

PATIENT
  Age: 66 Year
  Sex: Female

DRUGS (1)
  1. BOTOX? [Suspect]
     Indication: MIGRAINE
     Dosage: 30 UNITS, SINGLE
     Route: 030
     Dates: start: 20130618, end: 20130618

REACTIONS (13)
  - Haematotoxicity [Unknown]
  - Dyspnoea [Recovered/Resolved]
  - Dysphagia [Recovered/Resolved]
  - Paralysis [Unknown]
  - Adverse event [Unknown]
  - Jaw disorder [Recovered/Resolved]
  - Pain [Unknown]
  - Musculoskeletal disorder [Recovered/Resolved]
  - Nausea [Unknown]
  - Prognathism [Unknown]
  - Facial paresis [Unknown]
  - Trismus [Unknown]
  - Dysarthria [Unknown]
